FAERS Safety Report 19893227 (Version 1)
Quarter: 2021Q3

REPORT INFORMATION
  Report Type: Spontaneous
  Country: US (occurrence: US)
  Receive Date: 20210929
  Receipt Date: 20210929
  Transmission Date: 20211014
  Serious: No
  Sender: FDA-Public Use
  Company Number: US-VIFOR (INTERNATIONAL) INC.-VIT-2021-07339

PATIENT
  Sex: Male

DRUGS (14)
  1. VELTASSA [Suspect]
     Active Substance: PATIROMER
     Indication: HYPERKALAEMIA
     Dosage: PACKET
     Route: 048
     Dates: start: 202106
  2. TRAMADOL. [Concomitant]
     Active Substance: TRAMADOL
  3. VELPHORO [Suspect]
     Active Substance: SUCROFERRIC OXYHYDROXIDE
     Indication: PRODUCT USED FOR UNKNOWN INDICATION
     Dosage: 100 MILLIGRAM (2 TABLETS)
  4. ALLOPURINOL. [Suspect]
     Active Substance: ALLOPURINOL
     Indication: PRODUCT USED FOR UNKNOWN INDICATION
  5. AMLODIPINE [Concomitant]
     Active Substance: AMLODIPINE BESYLATE
  6. ASPIRIN. [Concomitant]
     Active Substance: ASPIRIN
  7. LEVOTHYROXINE. [Concomitant]
     Active Substance: LEVOTHYROXINE
     Route: 048
  8. METOPROLOL SUCCINATE. [Concomitant]
     Active Substance: METOPROLOL SUCCINATE
     Dosage: 1/2 TABLET
     Route: 048
  9. TRAZODONE HYDROCHLORIDE. [Concomitant]
     Active Substance: TRAZODONE HYDROCHLORIDE
     Indication: INSOMNIA
     Dosage: 1/2 TABLET
  10. ATORVASTATIN [Concomitant]
     Active Substance: ATORVASTATIN
  11. FUROSEMIDE. [Concomitant]
     Active Substance: FUROSEMIDE
     Dosage: 1 TABLET
  12. HYDRALAZINE [Concomitant]
     Active Substance: HYDRALAZINE HYDROCHLORIDE
  13. VELTASSA [Suspect]
     Active Substance: PATIROMER
     Indication: RENAL FAILURE
  14. VITAMIN D3 [Concomitant]
     Active Substance: CHOLECALCIFEROL

REACTIONS (3)
  - Wrong technique in product usage process [Unknown]
  - Diarrhoea [Not Recovered/Not Resolved]
  - Circumstance or information capable of leading to medication error [Unknown]

NARRATIVE: CASE EVENT DATE: 2021
